FAERS Safety Report 5758700-7 (Version None)
Quarter: 2008Q2

REPORT INFORMATION
  Report Type: 
  Country: None (occurrence: None)
  Receive Date: 20080603
  Receipt Date: 20080603
  Transmission Date: 20081010
  Serious: Yes (Hospitalization)
  Sender: FDA-Public Use
  Company Number: None

PATIENT
  Sex: Male
  Weight: 62.7 kg

DRUGS (6)
  1. CYCLOPHOSPHAMIDE [Suspect]
     Dosage: 2799 MG
  2. DOXORUBICIN HYDROCHLORIDE [Suspect]
     Dosage: 148 MG
  3. ETOPOSIDE [Suspect]
     Dosage: 748 MG
  4. PREDNISONE [Suspect]
     Dosage: 1080 MG
  5. RITUXIMAB (MOAB C2B8 ANTI CD20, CHIMERIC) [Suspect]
     Dosage: 675 MG
  6. VINCRISTINE SULFATE [Suspect]
     Dosage: 2.88 MG

REACTIONS (7)
  - FEBRILE NEUTROPENIA [None]
  - HAEMOGLOBIN DECREASED [None]
  - HEART RATE INCREASED [None]
  - MUCOSAL INFLAMMATION [None]
  - PHARYNGOLARYNGEAL PAIN [None]
  - PLATELET COUNT DECREASED [None]
  - STOMATITIS [None]
